FAERS Safety Report 18794079 (Version 1)
Quarter: 2021Q1

REPORT INFORMATION
  Report Type: Spontaneous
  Country: US (occurrence: US)
  Receive Date: 20210127
  Receipt Date: 20210127
  Transmission Date: 20210419
  Serious: Yes (Other)
  Sender: FDA-Public Use
  Company Number: US-CARMA LABORATORIES -2105904

PATIENT
  Sex: Female

DRUGS (1)
  1. CARMEX CLASSIC LIP BALM MEDICATED [Suspect]
     Active Substance: CAMPHOR (SYNTHETIC)\PETROLATUM
     Indication: CHAPPED LIPS
     Route: 061
     Dates: start: 20210116, end: 20210116

REACTIONS (1)
  - Swelling [Recovered/Resolved]

NARRATIVE: CASE EVENT DATE: 20210116
